FAERS Safety Report 16219245 (Version 2)
Quarter: 2019Q2

REPORT INFORMATION
  Report Type: Spontaneous
  Country: JP (occurrence: JP)
  Receive Date: 20190419
  Receipt Date: 20190419
  Transmission Date: 20190711
  Serious: Yes (Death, Hospitalization, Other)
  Sender: FDA-Public Use
  Company Number: PHJP2019JP004354

PATIENT
  Age: 80 Year
  Sex: Female

DRUGS (2)
  1. CICLOSPORIN [Suspect]
     Active Substance: CYCLOSPORINE
     Indication: INTERSTITIAL LUNG DISEASE
     Dosage: UNK
     Route: 065
  2. PREDNISOLONE. [Concomitant]
     Active Substance: PREDNISOLONE
     Indication: INTERSTITIAL LUNG DISEASE
     Dosage: UNK
     Route: 048

REACTIONS (15)
  - Acute kidney injury [Fatal]
  - Fluid overload [Fatal]
  - Product use in unapproved indication [Unknown]
  - Oliguria [Fatal]
  - Generalised oedema [Fatal]
  - Depressed level of consciousness [Unknown]
  - Dyspnoea [Fatal]
  - Chronic kidney disease [Unknown]
  - Nephrotic syndrome [Fatal]
  - Focal segmental glomerulosclerosis [Fatal]
  - Proteinuria [Fatal]
  - Respiratory failure [Fatal]
  - Hypertension [Unknown]
  - Blood pressure decreased [Unknown]
  - Nausea [Fatal]
